FAERS Safety Report 4359993-3 (Version None)
Quarter: 2004Q2

REPORT INFORMATION
  Report Type: 
  Country: None (occurrence: None)
  Receive Date: 20040518
  Receipt Date: 20040518
  Transmission Date: 20050107
  Serious: Yes (Hospitalization)
  Sender: FDA-Public Use
  Company Number: None

PATIENT
  Sex: Male

DRUGS (1)
  1. LISINOPRIL [Suspect]
     Indication: HYPERTENSION
     Dosage: 10MG QAM ORAL
     Route: 048
     Dates: start: 20040315, end: 20040315

REACTIONS (3)
  - EMOTIONAL DISTRESS [None]
  - HOARSENESS [None]
  - OROPHARYNGEAL SWELLING [None]
